FAERS Safety Report 5458189-1 (Version None)
Quarter: 2007Q3

REPORT INFORMATION
  Report Type: 
  Country: None (occurrence: None)
  Receive Date: 20070919
  Receipt Date: 20070905
  Transmission Date: 20080115
  Serious: Yes (Hospitalization)
  Sender: FDA-Public Use
  Company Number: PHHO2007US09647

PATIENT
  Age: 51 Year
  Sex: Male
  Weight: 73.5 kg

DRUGS (8)
  1. CERTICAN [Suspect]
     Indication: RENAL TRANSPLANT
     Dosage: 720 MG, BID
     Route: 048
     Dates: start: 20070109, end: 20070402
  2. RAPAMUNE [Concomitant]
  3. PREDNISOLONE [Concomitant]
  4. CALCITRIOL [Concomitant]
  5. ASPIRIN [Concomitant]
  6. TOPROL-XL [Concomitant]
  7. NEORAL [Concomitant]
     Indication: RENAL TRANSPLANT
     Dosage: 150 MG, BID
     Route: 048
     Dates: start: 20070109, end: 20070402
  8. NEUPOGEN [Concomitant]

REACTIONS (5)
  - ATELECTASIS [None]
  - COUGH [None]
  - FEBRILE NEUTROPENIA [None]
  - LEUKOPENIA [None]
  - NEUTROPENIA [None]
